FAERS Safety Report 23215978 (Version 1)
Quarter: 2023Q4

REPORT INFORMATION
  Report Type: Spontaneous
  Country: CN (occurrence: CN)
  Receive Date: 20231122
  Receipt Date: 20231122
  Transmission Date: 20240110
  Serious: Yes (Other)
  Sender: FDA-Public Use
  Company Number: CN-GILEAD-2023-0651839

PATIENT
  Age: 43 Year
  Sex: Female
  Weight: 65 kg

DRUGS (3)
  1. VEMLIDY [Suspect]
     Active Substance: TENOFOVIR ALAFENAMIDE FUMARATE
     Indication: Acquired immunodeficiency syndrome
     Dosage: 1 DOSAGE FORM, QD
     Route: 048
     Dates: start: 20230905, end: 20230915
  2. LOPINAVIR\RITONAVIR [Suspect]
     Active Substance: LOPINAVIR\RITONAVIR
     Indication: Acquired immunodeficiency syndrome
     Dosage: 4 TABLET
     Route: 048
     Dates: start: 20230905, end: 20230915
  3. EPIVIR [Suspect]
     Active Substance: LAMIVUDINE
     Indication: Acquired immunodeficiency syndrome
     Dosage: 1 DOSAGE FORM
     Route: 048
     Dates: start: 20230905, end: 20230915

REACTIONS (5)
  - Drug-induced liver injury [Recovering/Resolving]
  - Face oedema [Recovering/Resolving]
  - Oedema peripheral [Recovering/Resolving]
  - Arthralgia [Recovering/Resolving]
  - Arthralgia [Unknown]

NARRATIVE: CASE EVENT DATE: 20230915
